FAERS Safety Report 21129969 (Version 1)
Quarter: 2022Q3

REPORT INFORMATION
  Report Type: Report from Study
  Country: CA (occurrence: CA)
  Receive Date: 20220726
  Receipt Date: 20220726
  Transmission Date: 20221027
  Serious: Yes (Other)
  Sender: FDA-Public Use
  Company Number: CA-BAUSCH-BL-2022-018503

PATIENT
  Age: 64 Year
  Sex: Male

DRUGS (5)
  1. ALBUTEROL SULFATE [Suspect]
     Active Substance: ALBUTEROL SULFATE
     Indication: Product used for unknown indication
     Route: 065
  2. MEPOLIZUMAB [Suspect]
     Active Substance: MEPOLIZUMAB
     Indication: Asthma
     Route: 058
  3. NUCALA [Suspect]
     Active Substance: MEPOLIZUMAB
     Indication: Asthma
     Route: 042
  4. PREDNISONE [Suspect]
     Active Substance: PREDNISONE
     Indication: Product used for unknown indication
     Route: 065
  5. TRELEGY ELLIPTA [Suspect]
     Active Substance: FLUTICASONE FUROATE\UMECLIDINIUM BROMIDE\VILANTEROL TRIFENATATE
     Indication: Product used for unknown indication
     Route: 065

REACTIONS (13)
  - Asthma [Recovered/Resolved]
  - Dyspnoea [Recovered/Resolved]
  - Emphysema [Recovered/Resolved]
  - Eosinophil count abnormal [Recovered/Resolved]
  - Full blood count abnormal [Recovered/Resolved]
  - Infection [Recovered/Resolved]
  - Loss of personal independence in daily activities [Recovered/Resolved]
  - Mucosal discolouration [Recovered/Resolved]
  - Productive cough [Recovered/Resolved]
  - Sleep disorder due to a general medical condition [Recovered/Resolved]
  - Wheezing [Recovered/Resolved]
  - Hypersensitivity [Recovered/Resolved]
  - Therapeutic product effect incomplete [Recovered/Resolved]
